FAERS Safety Report 8036794 (Version 3)
Quarter: 2013Q4

REPORT INFORMATION
  Report Type: Spontaneous
  Country: US (occurrence: US)
  Receive Date: 20110715
  Receipt Date: 20131011
  Transmission Date: 20140711
  Serious: Yes (Hospitalization, Other)
  Sender: FDA-Public Use
  Company Number: US-AMGEN-USASP2011033687

PATIENT
  Sex: Female
  Weight: 92.06 kg

DRUGS (17)
  1. ENBREL [Suspect]
     Indication: RHEUMATOID ARTHRITIS
     Dosage: 50 MG, QWK
     Route: 065
     Dates: start: 20010101
  2. MEDROL                             /00049601/ [Concomitant]
     Dosage: UNK
  3. PREDNISONE                         /00044702/ [Concomitant]
     Dosage: UNK
  4. BESIVANCE                          /06324101/ [Concomitant]
     Dosage: UNK
  5. CIMZIA [Concomitant]
     Dosage: UNK
  6. COUMADIN                           /00014802/ [Concomitant]
     Dosage: UNK
  7. CYANOCOBALAMIN [Concomitant]
     Dosage: UNK
  8. FENTANYL                           /00174602/ [Concomitant]
     Dosage: UNK
  9. FLUOXETINE [Concomitant]
     Dosage: UNK
  10. GABAPENTIN [Concomitant]
     Dosage: UNK
  11. KLOR-CON [Concomitant]
     Dosage: UNK
  12. LASIX                              /00032601/ [Concomitant]
     Dosage: UNK
  13. LIPITOR [Concomitant]
     Dosage: UNK
  14. METOPROLOL [Concomitant]
     Dosage: UNK
  15. NEXIUM                             /01479302/ [Concomitant]
     Dosage: UNK
  16. VITAMIN B [Concomitant]
     Dosage: UNK
  17. ZOLPIDEM [Concomitant]
     Dosage: UNK

REACTIONS (27)
  - Pulmonary embolism [Recovered/Resolved]
  - Atrial fibrillation [Not Recovered/Not Resolved]
  - Dyspnoea [Unknown]
  - Hypotension [Recovered/Resolved]
  - Urine output decreased [Recovered/Resolved]
  - Ascites [Recovered/Resolved]
  - Contusion [Recovered/Resolved]
  - Intra-abdominal haemorrhage [Recovered/Resolved]
  - Chronic obstructive pulmonary disease [Not Recovered/Not Resolved]
  - Adverse drug reaction [Unknown]
  - Depression [Unknown]
  - Cardiac failure congestive [Recovered/Resolved]
  - Bronchitis [Recovered/Resolved]
  - Injection site hypersensitivity [Recovered/Resolved]
  - Rheumatoid arthritis [Not Recovered/Not Resolved]
  - Ventricular extrasystoles [Recovered/Resolved]
  - Drug hypersensitivity [Not Recovered/Not Resolved]
  - Weight decreased [Recovered/Resolved]
  - Ageusia [Recovered/Resolved]
  - Weight increased [Recovered/Resolved]
  - Fluid overload [Recovered/Resolved]
  - Red blood cell sedimentation rate increased [Recovered/Resolved]
  - Fatigue [Not Recovered/Not Resolved]
  - Nodule [Recovered/Resolved]
  - Pain in extremity [Not Recovered/Not Resolved]
  - Cutaneous vasculitis [Unknown]
  - Sinusitis [Recovered/Resolved]
